FAERS Safety Report 14414095 (Version 2)
Quarter: 2018Q1

REPORT INFORMATION
  Report Type: Spontaneous
  Country: NO (occurrence: NO)
  Receive Date: 20180119
  Receipt Date: 20180201
  Transmission Date: 20180509
  Serious: Yes (Death, Hospitalization)
  Sender: FDA-Public Use
  Company Number: NO-ROCHE-2058576

PATIENT
  Age: 31 Year
  Sex: Female

DRUGS (4)
  1. AVASTIN [Suspect]
     Active Substance: BEVACIZUMAB
     Indication: CERVIX CANCER METASTATIC
     Route: 042
     Dates: start: 20170914, end: 20171116
  2. VECTIBIX [Suspect]
     Active Substance: PANITUMUMAB
     Indication: NEURALGIA
     Route: 042
     Dates: start: 20171023, end: 20171207
  3. AVASTIN [Suspect]
     Active Substance: BEVACIZUMAB
     Route: 065
     Dates: start: 201701, end: 2017
  4. VECTIBIX [Suspect]
     Active Substance: PANITUMUMAB
     Route: 065
     Dates: start: 20160322, end: 201611

REACTIONS (3)
  - Abdominal sepsis [Fatal]
  - Large intestine perforation [Fatal]
  - Ileal perforation [Fatal]

NARRATIVE: CASE EVENT DATE: 20171208
